FAERS Safety Report 5887267-8 (Version None)
Quarter: 2008Q3

REPORT INFORMATION
  Report Type: 
  Country: None (occurrence: None)
  Receive Date: 20080915
  Receipt Date: 20080829
  Transmission Date: 20090109
  Serious: Yes (Life-Threatening, Hospitalization, Other)
  Sender: FDA-Public Use
  Company Number: CC# 08-126

PATIENT
  Sex: Female

DRUGS (1)
  1. METRONIDAZOLE [Suspect]
     Dosage: 37.5 MG
     Dates: start: 20080806, end: 20080811

REACTIONS (2)
  - ANAPHYLACTIC SHOCK [None]
  - PRURITUS [None]
